FAERS Safety Report 10081436 (Version 1)
Quarter: 2014Q2

REPORT INFORMATION
  Report Type: Report from Study
  Country: JP (occurrence: JP)
  Receive Date: 20140416
  Receipt Date: 20140416
  Transmission Date: 20141212
  Serious: Yes (Other)
  Sender: FDA-Public Use
  Company Number: PHHY2014JP042549

PATIENT
  Age: 38 Year
  Sex: Male
  Weight: 46 kg

DRUGS (20)
  1. FTY 720 [Suspect]
     Indication: MULTIPLE SCLEROSIS
     Dosage: 0.5 MG, DAILY
     Route: 048
     Dates: start: 20120308
  2. TERNELIN [Concomitant]
     Indication: MULTIPLE SCLEROSIS
     Dosage: 1 MG, UNK
  3. LIORESAL [Concomitant]
     Indication: MUSCLE SPASMS
     Dosage: 15 MG, UNK
     Dates: start: 20130410
  4. LIORESAL [Concomitant]
     Dosage: 5 MG, UNK
     Dates: start: 20130410
  5. AVONEX [Concomitant]
     Indication: MULTIPLE SCLEROSIS
     Route: 030
     Dates: end: 20120306
  6. TIZANELIN [Concomitant]
     Indication: MULTIPLE SCLEROSIS
     Route: 048
  7. WARFARIN [Concomitant]
     Indication: DEEP VEIN THROMBOSIS
     Dosage: 1 MG, UNK
     Route: 048
  8. WARFARIN [Concomitant]
     Dosage: 0.5 MG, UNK
     Route: 048
  9. MARZULENE-S [Concomitant]
     Indication: PROPHYLAXIS
     Dosage: 3 G, UNK
     Route: 048
     Dates: end: 20120306
  10. NOZLEN [Concomitant]
     Indication: PROPHYLAXIS
     Dosage: 0.6 G, UNK
     Dates: start: 20120307
  11. NOZLEN [Concomitant]
     Dosage: 0.6 G, UNK
  12. MAGMITT [Concomitant]
     Indication: CONSTIPATION
     Dosage: 1000 MG, UNK
     Route: 048
  13. MAGMITT [Concomitant]
     Dosage: 660 MG, UNK
  14. NAIXAN [Concomitant]
     Indication: BACK PAIN
     Dosage: 200 MG, UNK
     Route: 048
     Dates: end: 20120306
  15. HYPEN [Concomitant]
     Indication: BACK PAIN
     Dosage: 200 MG, UNK
     Route: 048
     Dates: start: 20120307
  16. DOPACOL [Concomitant]
     Indication: MULTIPLE SCLEROSIS
     Dosage: 150 MG, UNK
     Route: 048
     Dates: start: 20120330
  17. EDIROL [Concomitant]
     Indication: OSTEOPOROSIS
     Dosage: 0.5 MG, UNK
  18. NEXIUM//ESOMEPRAZOLE MAGNESIUM [Concomitant]
     Indication: GASTROOESOPHAGEAL REFLUX DISEASE
     Dosage: 20 MG, UNK
     Dates: start: 20130410
  19. HARNAL [Concomitant]
     Indication: POLLAKIURIA
     Dosage: 2 MG, UNK
     Dates: start: 20140114
  20. MUCODYNE [Concomitant]
     Indication: SPUTUM RETENTION
     Dosage: 750 MG, UNK

REACTIONS (6)
  - Gastric fistula [Recovered/Resolved with Sequelae]
  - Pneumonia aspiration [Recovering/Resolving]
  - Nasopharyngitis [Recovered/Resolved]
  - Lymphocyte count decreased [Unknown]
  - Aspartate aminotransferase increased [Unknown]
  - Liver function test abnormal [Recovered/Resolved]
